FAERS Safety Report 18904366 (Version 1)
Quarter: 2021Q1

REPORT INFORMATION
  Report Type: Spontaneous
  Country: US (occurrence: US)
  Receive Date: 20210216
  Receipt Date: 20210216
  Transmission Date: 20210420
  Serious: Yes (Hospitalization)
  Sender: FDA-Public Use
  Company Number: None

PATIENT
  Age: 75 Year
  Sex: Female

DRUGS (6)
  1. AMBRISENTAN [Suspect]
     Active Substance: AMBRISENTAN
     Route: 048
  2. BUMETANIDE. [Concomitant]
     Active Substance: BUMETANIDE
  3. TADALAFIL, 20 MG [Suspect]
     Active Substance: TADALAFIL
     Indication: PULMONARY ARTERIAL HYPERTENSION
     Route: 048
     Dates: start: 20190410, end: 20190918
  4. METOCLOPRAM [Concomitant]
     Active Substance: METOCLOPRAMIDE
  5. MELOXICAM. [Concomitant]
     Active Substance: MELOXICAM
  6. PHENOBARB [Concomitant]
     Active Substance: PHENOBARBITAL SODIUM

REACTIONS (1)
  - Pancreatitis [None]

NARRATIVE: CASE EVENT DATE: 20210208
